FAERS Safety Report 6723808-6 (Version None)
Quarter: 2010Q2

REPORT INFORMATION
  Report Type: 
  Country: None (occurrence: None)
  Receive Date: 20100513
  Receipt Date: 20100210
  Transmission Date: 20101027
  Serious: No
  Sender: FDA-Public Use
  Company Number: A0844577A

PATIENT
  Sex: Female

DRUGS (1)
  1. TREXIMET [Suspect]
     Indication: MIGRAINE
     Dosage: 1TAB AS DIRECTED
     Route: 048
     Dates: start: 20090901, end: 20100201

REACTIONS (8)
  - ABDOMINAL PAIN UPPER [None]
  - CHEST PAIN [None]
  - HEADACHE [None]
  - MIGRAINE [None]
  - NECK PAIN [None]
  - PAIN IN EXTREMITY [None]
  - RASH [None]
  - SKIN EXFOLIATION [None]
